FAERS Safety Report 6762146-2 (Version None)
Quarter: 2010Q2

REPORT INFORMATION
  Report Type: 
  Country: None (occurrence: None)
  Receive Date: 20100609
  Receipt Date: 20100603
  Transmission Date: 20101027
  Serious: Yes (Hospitalization)
  Sender: FDA-Public Use
  Company Number: IL-ABBOTT-10P-082-0646454-00

PATIENT
  Age: 22 Year
  Sex: Female
  Weight: 50 kg

DRUGS (8)
  1. HUMIRA [Suspect]
     Indication: CROHN'S DISEASE
     Dates: start: 20100401
  2. HUMIRA [Suspect]
  3. HUMIRA [Suspect]
  4. STEROIDS [Concomitant]
     Indication: DRUG USE FOR UNKNOWN INDICATION
  5. CIPRO [Concomitant]
     Indication: DRUG USE FOR UNKNOWN INDICATION
  6. IMURAN [Concomitant]
     Indication: CROHN'S DISEASE
  7. FLAGYL [Concomitant]
     Indication: DRUG USE FOR UNKNOWN INDICATION
  8. PREDNISONE [Concomitant]
     Indication: DRUG USE FOR UNKNOWN INDICATION

REACTIONS (3)
  - DIARRHOEA [None]
  - ERYTHEMA NODOSUM LEPROSUM [None]
  - PYREXIA [None]
